FAERS Safety Report 11861137 (Version 1)
Quarter: 2015Q4

REPORT INFORMATION
  Report Type: Spontaneous
  Country: US (occurrence: US)
  Receive Date: 20151222
  Receipt Date: 20151222
  Transmission Date: 20160305
  Serious: No
  Sender: FDA-Public Use
  Company Number: US-AVANIR PHARMACEUTICALS, INC.-2011NUEUSA00047

PATIENT
  Age: 74 Year
  Sex: Male
  Weight: 73.02 kg

DRUGS (6)
  1. NUEDEXTA [Suspect]
     Active Substance: DEXTROMETHORPHAN HYDROBROMIDE\QUINIDINE SULFATE
     Dosage: 1 CAP, BID
     Dates: start: 20110601, end: 2011
  2. NUEDEXTA [Suspect]
     Active Substance: DEXTROMETHORPHAN HYDROBROMIDE\QUINIDINE SULFATE
     Indication: MUSCLE DISORDER
     Dosage: 1 CAP, QD
     Dates: start: 20110525, end: 20110531
  3. NUEDEXTA [Suspect]
     Active Substance: DEXTROMETHORPHAN HYDROBROMIDE\QUINIDINE SULFATE
     Dosage: 1 CAP, QD
     Dates: start: 2011, end: 20110824
  4. GLYCOPYRROLATE                     /00196201/ [Concomitant]
     Active Substance: GLYCOPYRRONIUM
     Indication: GASTROOESOPHAGEAL REFLUX DISEASE
  5. GLYCOPYRROLATE                     /00196201/ [Concomitant]
     Active Substance: GLYCOPYRRONIUM
     Indication: SALIVARY GLAND DISORDER
  6. OXYBUTYNIN [Concomitant]
     Active Substance: OXYBUTYNIN
     Indication: BLADDER DISORDER
     Dosage: UNK

REACTIONS (11)
  - Asthenia [Recovered/Resolved]
  - Somnolence [Recovered/Resolved]
  - Salivary hypersecretion [None]
  - Hyperhidrosis [Recovered/Resolved]
  - Chills [Recovered/Resolved]
  - Hot flush [Recovered/Resolved]
  - Gastrooesophageal reflux disease [None]
  - Malaise [Recovered/Resolved]
  - Choking [None]
  - Insomnia [None]
  - Cough [None]

NARRATIVE: CASE EVENT DATE: 2011
